FAERS Safety Report 16306518 (Version 1)
Quarter: 2019Q2

REPORT INFORMATION
  Report Type: Spontaneous
  Country: DE (occurrence: DE)
  Receive Date: 20190513
  Receipt Date: 20190513
  Transmission Date: 20190711
  Serious: Yes (Hospitalization)
  Sender: FDA-Public Use
  Company Number: DE-MYLANLABS-2019M1044670

PATIENT
  Age: 41 Year
  Sex: Female

DRUGS (1)
  1. VALSARTAN. [Suspect]
     Active Substance: VALSARTAN
     Indication: HYPERTENSION
     Dosage: UNK UNK, UNK

REACTIONS (4)
  - Breech presentation [Unknown]
  - Oligohydramnios [Unknown]
  - Premature labour [Unknown]
  - Maternal exposure during pregnancy [Unknown]
